FAERS Safety Report 25218560 (Version 2)
Quarter: 2025Q2

REPORT INFORMATION
  Report Type: Spontaneous
  Country: US (occurrence: US)
  Receive Date: 20250421
  Receipt Date: 20250502
  Transmission Date: 20250716
  Serious: Yes (Death, Hospitalization)
  Sender: TEVA
  Company Number: US-TEVA-VS-3323521

PATIENT
  Sex: Female

DRUGS (4)
  1. TRANEXAMIC ACID [Suspect]
     Active Substance: TRANEXAMIC ACID
     Indication: Shock haemorrhagic
     Route: 065
  2. CYTARABINE [Suspect]
     Active Substance: CYTARABINE
     Indication: Chronic myelomonocytic leukaemia
     Route: 065
  3. IMMUNE GLOBULIN NOS [Suspect]
     Active Substance: IMMUNE GLOBULIN NOS
     Indication: Immune thrombocytopenia
     Route: 042
  4. TRETINOIN [Suspect]
     Active Substance: TRETINOIN
     Indication: Chronic myelomonocytic leukaemia
     Route: 065

REACTIONS (1)
  - Drug ineffective [Fatal]
